FAERS Safety Report 24546814 (Version 1)
Quarter: 2024Q4

REPORT INFORMATION
  Report Type: Spontaneous
  Country: SE (occurrence: SE)
  Receive Date: 20241024
  Receipt Date: 20241024
  Transmission Date: 20250115
  Serious: Yes (Life-Threatening, Hospitalization)
  Sender: NOVO NORDISK
  Company Number: None

PATIENT
  Age: 64 Year
  Sex: Female
  Weight: 160 kg

DRUGS (8)
  1. LOSARTAN POTASSIUM [Concomitant]
     Active Substance: LOSARTAN POTASSIUM
     Dosage: 1X1
     Route: 048
     Dates: start: 20210604
  2. OZEMPIC [Suspect]
     Active Substance: SEMAGLUTIDE
     Indication: Type 2 diabetes mellitus
     Dosage: 0.5 MG, QW(FOURTH DOSE)
     Route: 058
     Dates: start: 20240907, end: 20241004
  3. OZEMPIC [Suspect]
     Active Substance: SEMAGLUTIDE
     Indication: Obesity
  4. PRADAXA [Concomitant]
     Active Substance: DABIGATRAN ETEXILATE MESYLATE
     Dosage: 150 MG, BID
     Route: 048
     Dates: start: 20151022
  5. METFORMIN ACCORD [Concomitant]
     Dosage: 500 MG, BID
     Route: 048
     Dates: start: 20221207
  6. METOPROLOL [Concomitant]
     Active Substance: METOPROLOL
     Dosage: 100 MG, QD (0.5X1)
     Route: 048
     Dates: start: 20151029
  7. BENDROFLUMETIAZID ALTERNOVA [Concomitant]
     Dosage: UNK (1X1)
     Route: 048
     Dates: start: 20150506
  8. FLUOXETINE HYDROCHLORIDE [Concomitant]
     Active Substance: FLUOXETINE HYDROCHLORIDE
     Dosage: UNK (1X1)
     Route: 048
     Dates: start: 20161227

REACTIONS (1)
  - Pancreatitis acute [Recovering/Resolving]

NARRATIVE: CASE EVENT DATE: 20241008
